FAERS Safety Report 17581966 (Version 1)
Quarter: 2020Q1

REPORT INFORMATION
  Report Type: Spontaneous
  Country: US (occurrence: US)
  Receive Date: 20200323
  Receipt Date: 20200323
  Transmission Date: 20200409
  Serious: Yes (Hospitalization)
  Sender: FDA-Public Use
  Company Number: None

PATIENT
  Age: 66 Year
  Sex: Female
  Weight: 62.2 kg

DRUGS (2)
  1. ABRAXANE [Suspect]
     Active Substance: PACLITAXEL
     Indication: METASTATIC MALIGNANT MELANOMA
     Dosage: ?          OTHER FREQUENCY:1XWEEKLYX3;OTHER ROUTE:IV 28 DAY CYCLE?
     Dates: start: 20200120, end: 20200304
  2. BEVACIZUMAB. [Suspect]
     Active Substance: BEVACIZUMAB
     Dosage: ?          OTHER FREQUENCY:1XWEEKLYX3;OTHER ROUTE:IV 28 DAY CYCLE?

REACTIONS (5)
  - Infection [None]
  - Disease progression [None]
  - Discomfort [None]
  - Abdominal pain [None]
  - Ascites [None]

NARRATIVE: CASE EVENT DATE: 20200318
